FAERS Safety Report 4272464-8 (Version None)
Quarter: 2004Q1

REPORT INFORMATION
  Report Type: 
  Country: None (occurrence: None)
  Receive Date: 20040115
  Receipt Date: 20010628
  Transmission Date: 20041129
  Serious: Yes (Other)
  Sender: FDA-Public Use
  Company Number: WAES 01063559

PATIENT
  Age: 73 Year
  Sex: Female
  Weight: 65 kg

DRUGS (2)
  1. ZOCOR [Suspect]
     Indication: HYPERCHOLESTEROLAEMIA
     Route: 048
     Dates: start: 19980101, end: 20000101
  2. ZOCOR [Suspect]
     Route: 048

REACTIONS (1)
  - ALOPECIA [None]
